FAERS Safety Report 11474971 (Version 1)
Quarter: 2015Q3

REPORT INFORMATION
  Report Type: Spontaneous
  Country: US (occurrence: None)
  Receive Date: 20150908
  Receipt Date: 20150908
  Transmission Date: 20151125
  Serious: Yes (Other)
  Sender: FDA-Public Use
  Company Number: None

PATIENT
  Age: 55 Year
  Sex: Female
  Weight: 104.33 kg

DRUGS (2)
  1. BACTRIM [Suspect]
     Active Substance: SULFAMETHOXAZOLE\TRIMETHOPRIM
     Indication: ERYTHEMA
     Route: 048
     Dates: start: 20150820, end: 20150827
  2. KETOCONAZOLE. [Suspect]
     Active Substance: KETOCONAZOLE
     Indication: TINEA INFECTION
     Route: 061
     Dates: start: 20150830, end: 20150901

REACTIONS (6)
  - Rash pruritic [None]
  - Therapeutic response decreased [None]
  - Product substitution issue [None]
  - Product quality issue [None]
  - Rash papular [None]
  - Blister [None]

NARRATIVE: CASE EVENT DATE: 20150901
